FAERS Safety Report 9773919 (Version 2)
Quarter: 2014Q1

REPORT INFORMATION
  Report Type: Spontaneous
  Country: NL (occurrence: NL)
  Receive Date: 20131220
  Receipt Date: 20140117
  Transmission Date: 20141002
  Serious: Yes (Other)
  Sender: FDA-Public Use
  Company Number: NL-AMGEN-NLDSP2013089124

PATIENT
  Age: 61 Year
  Sex: Male
  Weight: 89 kg

DRUGS (4)
  1. ENBREL [Suspect]
     Indication: ANKYLOSING SPONDYLITIS
     Dosage: 50 MG, UNK
     Route: 058
     Dates: start: 20110721
  2. LISINOPRIL [Concomitant]
     Indication: HYPERTENSION
     Dosage: 5 MG, UNK
     Route: 048
     Dates: start: 2007
  3. DEPAKINE                           /00228501/ [Concomitant]
     Indication: EPILEPSY
     Dosage: 1250 MG, UNK
     Route: 048
     Dates: start: 1998
  4. ARCOXIA [Concomitant]
     Indication: ANKYLOSING SPONDYLITIS
     Dosage: 20 UNK, UNK
     Dates: start: 2011

REACTIONS (2)
  - Thrombosis [Not Recovered/Not Resolved]
  - Blindness unilateral [Not Recovered/Not Resolved]
